FAERS Safety Report 17681008 (Version 10)
Quarter: 2021Q2

REPORT INFORMATION
  Report Type: Report from Study
  Country: US (occurrence: US)
  Receive Date: 20200417
  Receipt Date: 20210511
  Transmission Date: 20210716
  Serious: Yes (Hospitalization, Other)
  Sender: FDA-Public Use
  Company Number: NVSC2020US103477

PATIENT
  Age: 63 Year
  Sex: Female

DRUGS (2)
  1. COSENTYX [Suspect]
     Active Substance: SECUKINUMAB
     Indication: PSORIATIC ARTHROPATHY
     Dosage: 300 MG, QMO
     Route: 058
  2. COSENTYX [Suspect]
     Active Substance: SECUKINUMAB
     Indication: PSORIASIS
     Dosage: 300 MG, QW
     Route: 058
     Dates: start: 20200414

REACTIONS (8)
  - Product dose omission issue [Unknown]
  - Myocardial infarction [Recovering/Resolving]
  - Psoriatic arthropathy [Unknown]
  - Injection site pain [Unknown]
  - Nausea [Unknown]
  - Cellulitis [Unknown]
  - Pneumonia [Unknown]
  - Psoriasis [Unknown]

NARRATIVE: CASE EVENT DATE: 20200414
